FAERS Safety Report 22073654 (Version 1)
Quarter: 2023Q1

REPORT INFORMATION
  Report Type: Spontaneous
  Country: US (occurrence: US)
  Receive Date: 20230308
  Receipt Date: 20230308
  Transmission Date: 20230418
  Serious: Yes (Other)
  Sender: FDA-Public Use
  Company Number: US-BAYER-2023A027130

PATIENT
  Age: 55 Year
  Sex: Male

DRUGS (2)
  1. ASPIRIN [Interacting]
     Active Substance: ASPIRIN
  2. COUMADIN [Interacting]
     Active Substance: WARFARIN SODIUM

REACTIONS (2)
  - Gastrointestinal haemorrhage [None]
  - Labelled drug-drug interaction medication error [None]
